FAERS Safety Report 8181033-9 (Version None)
Quarter: 2012Q1

REPORT INFORMATION
  Report Type: 
  Country: None (occurrence: None)
  Receive Date: 20120302
  Receipt Date: 20120224
  Transmission Date: 20120608
  Serious: Yes (Other)
  Sender: FDA-Public Use
  Company Number: NL-PFIZER INC-2012050492

PATIENT
  Age: 77 Year
  Sex: Female
  Weight: 77 kg

DRUGS (5)
  1. TIMOLOL MALEATE [Suspect]
     Indication: GLAUCOMA
     Dosage: 1 DF, 1X/DAY
     Dates: start: 20110826, end: 20120202
  2. HYDROCHLOROTHIAZIDE [Concomitant]
     Dosage: 25 MG, UNK
     Dates: start: 20071201
  3. ESOMEPRAZOLE [Concomitant]
     Dosage: 40 MG, UNK
     Dates: start: 20071201
  4. XALATAN [Suspect]
     Indication: GLAUCOMA
     Dosage: 1 DF, 1X/DAY
     Dates: start: 20110826
  5. SIMVASTATIN [Concomitant]
     Dosage: 40 MG, UNK
     Dates: start: 20071201

REACTIONS (2)
  - DYSPNOEA EXERTIONAL [None]
  - CARDIAC FAILURE [None]
